FAERS Safety Report 14504920 (Version 1)
Quarter: 2018Q1

REPORT INFORMATION
  Report Type: Spontaneous
  Country: US (occurrence: US)
  Receive Date: 20180208
  Receipt Date: 20180208
  Transmission Date: 20180509
  Serious: No
  Sender: FDA-Public Use
  Company Number: US-JNJFOC-20171217566

PATIENT
  Age: 77 Year
  Sex: Male

DRUGS (1)
  1. IMBRUVICA [Suspect]
     Active Substance: IBRUTINIB
     Indication: CHRONIC LYMPHOCYTIC LEUKAEMIA
     Route: 048
     Dates: start: 201609, end: 20171127

REACTIONS (10)
  - Hypoaesthesia [Not Recovered/Not Resolved]
  - Balance disorder [Unknown]
  - Incorrect dose administered [Unknown]
  - Lymphadenopathy [Recovering/Resolving]
  - Paraesthesia oral [Not Recovered/Not Resolved]
  - Influenza [Unknown]
  - Personality change [Unknown]
  - Malaise [Unknown]
  - Herpes zoster [Unknown]
  - Off label use [Unknown]

NARRATIVE: CASE EVENT DATE: 201609
